FAERS Safety Report 22612352 (Version 2)
Quarter: 2023Q2

REPORT INFORMATION
  Report Type: Spontaneous
  Country: US (occurrence: US)
  Receive Date: 20230617
  Receipt Date: 20230623
  Transmission Date: 20230721
  Serious: No
  Sender: FDA-Public Use
  Company Number: US-GLAXOSMITHKLINE-USCH2023028846

PATIENT

DRUGS (1)
  1. VOLTAREN [Suspect]
     Active Substance: DICLOFENAC SODIUM
     Indication: Product used for unknown indication
     Dosage: UNK UNK, TID
     Route: 065
     Dates: end: 202306

REACTIONS (4)
  - Arthritis [Recovering/Resolving]
  - Condition aggravated [Recovering/Resolving]
  - Feeling jittery [Recovering/Resolving]
  - Inappropriate schedule of product administration [Unknown]
